FAERS Safety Report 8048362-0 (Version None)
Quarter: 2012Q1

REPORT INFORMATION
  Report Type: 
  Country: None (occurrence: None)
  Receive Date: 20120117
  Receipt Date: 20120112
  Transmission Date: 20120608
  Serious: No
  Sender: FDA-Public Use
  Company Number: US-PFIZER INC-2012011017

PATIENT
  Sex: Female
  Weight: 95.238 kg

DRUGS (4)
  1. CHANTIX [Suspect]
     Indication: SMOKING CESSATION THERAPY
     Dosage: 0.5 MG, DAILY
     Dates: start: 20111223
  2. CHANTIX [Suspect]
     Dosage: 1 MG, 2X/DAY
  3. NISOLDIPINE [Concomitant]
     Indication: HYPERTENSION
     Dosage: 20 MG, DAILY
  4. LIPITOR [Concomitant]
     Indication: BLOOD CHOLESTEROL INCREASED
     Dosage: 40 MG, DAILY

REACTIONS (1)
  - NAUSEA [None]
